FAERS Safety Report 24061567 (Version 2)
Quarter: 2024Q3

REPORT INFORMATION
  Report Type: Spontaneous
  Country: JP (occurrence: None)
  Receive Date: 20240708
  Receipt Date: 20240902
  Transmission Date: 20241017
  Serious: Yes (Death)
  Sender: ASTRAZENECA
  Company Number: 2024A154439

PATIENT
  Age: 83 Year
  Sex: Female

DRUGS (6)
  1. ONDEXXYA [Suspect]
     Active Substance: ANDEXANET ALFA
     Indication: Cerebral haemorrhage
     Route: 042
     Dates: start: 20240510, end: 20240510
  2. ONDEXXYA [Suspect]
     Active Substance: ANDEXANET ALFA
     Indication: Haemorrhage
     Route: 042
     Dates: start: 20240510, end: 20240510
  3. ONDEXXYA [Suspect]
     Active Substance: ANDEXANET ALFA
     Indication: Cerebral haemorrhage
     Route: 042
     Dates: start: 20240608, end: 20240608
  4. ONDEXXYA [Suspect]
     Active Substance: ANDEXANET ALFA
     Indication: Haemorrhage
     Route: 042
     Dates: start: 20240608, end: 20240608
  5. TAGRISSO [Concomitant]
     Active Substance: OSIMERTINIB
  6. ELIQUIS [Concomitant]
     Active Substance: APIXABAN

REACTIONS (2)
  - Cerebral infarction [Fatal]
  - Thrombophlebitis migrans [Fatal]

NARRATIVE: CASE EVENT DATE: 20240101
